FAERS Safety Report 5825754-9 (Version None)
Quarter: 2008Q3

REPORT INFORMATION
  Report Type: 
  Country: None (occurrence: None)
  Receive Date: 20080729
  Receipt Date: 20080717
  Transmission Date: 20090109
  Serious: Yes (Death)
  Sender: FDA-Public Use
  Company Number: GB-MERCK-0807GBR00087

PATIENT
  Sex: Male

DRUGS (2)
  1. CANCIDAS [Suspect]
     Indication: CANDIDIASIS
     Route: 051
  2. [THERAPY UNSPECIFIED] [Concomitant]
     Route: 065

REACTIONS (2)
  - DEATH [None]
  - HEPATIC ENZYME INCREASED [None]
